FAERS Safety Report 8772941 (Version 1)
Quarter: 2012Q4

REPORT INFORMATION
  Report Type: 
  Country: US (occurrence: US)
  Receive Date: 20120913
  Receipt Date: 20120913
  Transmission Date: 20130627
  Serious: Yes (Hospitalization, Disabling, Other)
  Sender: FDA-Public Use
  Company Number: PHEH2012US017316

PATIENT
  Age: 41 Year
  Sex: Female
  Weight: 115.45 kg

DRUGS (9)
  1. MYFORTIC [Suspect]
     Indication: HEART TRANSPLANT
     Dosage: 360 mg, BID
     Route: 048
     Dates: start: 20111003
  2. TACROLIMUS [Suspect]
     Indication: HEART TRANSPLANT
     Dosage: 5 mg, BID
     Route: 048
     Dates: start: 20000722
  3. PREDNISONE [Concomitant]
     Dosage: 5 mg, QD
  4. OXYCODONE HCL W/NALOXONE HCL [Concomitant]
     Dosage: 30 mg,every 3 hours
  5. AMLODIPINE [Concomitant]
     Dosage: 5 mg, every evening
  6. BACTRIM DS [Concomitant]
     Dosage: 2 DF, QW (800/160 mg) every 12 hour every mondays
  7. XANAX [Concomitant]
     Dosage: 2 mg, TID
  8. SERTRALINE HYDROCHLORIDE [Concomitant]
     Dosage: 50 mg, every morning
  9. GABAPENTIN [Concomitant]
     Dosage: 300 mg, TID

REACTIONS (3)
  - Complications of transplanted heart [Unknown]
  - Hypotension [Recovering/Resolving]
  - Pyrexia [Recovering/Resolving]
